FAERS Safety Report 9830791 (Version 3)
Quarter: 2014Q1

REPORT INFORMATION
  Report Type: Spontaneous
  Country: US (occurrence: US)
  Receive Date: 20140120
  Receipt Date: 20140213
  Transmission Date: 20141002
  Serious: Yes (Death, Hospitalization)
  Sender: FDA-Public Use
  Company Number: US-ACTELION-A-NJ2014-93866

PATIENT
  Age: 69 Year
  Sex: Female

DRUGS (11)
  1. OPSUMIT [Suspect]
     Indication: PULMONARY ARTERIAL HYPERTENSION
     Dosage: 10 MG, QD
     Route: 048
     Dates: start: 20131213
  2. GLIPIZIDE [Concomitant]
  3. ZOLOFT [Concomitant]
  4. MAGNESIUM OXIDE [Concomitant]
  5. REVATIO [Concomitant]
  6. LOPRESSOR [Concomitant]
  7. LIPITOR [Concomitant]
  8. LASIX [Concomitant]
  9. LISINOPRIL [Concomitant]
  10. XARELTO [Concomitant]
  11. TYLENOL [Concomitant]

REACTIONS (4)
  - Pulmonary hypertension [Fatal]
  - Disease progression [Fatal]
  - Myocardial infarction [Not Recovered/Not Resolved]
  - Lung infection [Not Recovered/Not Resolved]
